FAERS Safety Report 8556520 (Version 3)
Quarter: 2012Q4

REPORT INFORMATION
  Report Type: Report from Study
  Country: US (occurrence: US)
  Receive Date: 20120510
  Receipt Date: 20121008
  Transmission Date: 20130627
  Serious: Yes (Other)
  Sender: FDA-Public Use
  Company Number: US-ABBOTT-12P-163-0931953-00

PATIENT
  Age: 49 None
  Sex: Female
  Weight: 87.17 kg

DRUGS (8)
  1. HUMIRA [Suspect]
     Indication: RHEUMATOID ARTHRITIS
     Dates: start: 2007, end: 200805
  2. HUMIRA [Suspect]
     Dates: start: 2008, end: 201001
  3. HUMIRA [Suspect]
     Dates: start: 2010, end: 201002
  4. HUMIRA [Suspect]
     Dates: start: 2010, end: 201004
  5. HUMIRA [Suspect]
     Dates: start: 2010, end: 201106
  6. HUMIRA [Suspect]
     Dates: start: 201109
  7. DILAUDID [Concomitant]
     Indication: PAIN
  8. LYRICA [Concomitant]
     Indication: FIBROMYALGIA

REACTIONS (10)
  - Postoperative thrombosis [Recovered/Resolved]
  - Back pain [Not Recovered/Not Resolved]
  - Back pain [Unknown]
  - Back pain [Unknown]
  - Muscular weakness [Recovering/Resolving]
  - Neck pain [Recovering/Resolving]
  - Ear pain [Recovering/Resolving]
  - Nerve injury [Recovering/Resolving]
  - Nerve compression [Recovering/Resolving]
  - Injection site pain [Not Recovered/Not Resolved]
